FAERS Safety Report 8912503 (Version 1)
Quarter: 2012Q4

REPORT INFORMATION
  Report Type: 
  Country: US (occurrence: US)
  Receive Date: 20121116
  Receipt Date: 20121116
  Transmission Date: 20130627
  Serious: No
  Sender: FDA-Public Use
  Company Number: US-009507513-1211USA003779

PATIENT
  Sex: Female
  Weight: 65.76 kg

DRUGS (6)
  1. PEGINTRON [Suspect]
     Dosage: 96 Microgram, qw
  2. RIBAVIRIN (WARRICK) [Suspect]
  3. VICTRELIS [Suspect]
  4. METOPROLOL [Concomitant]
  5. ASPIRIN [Concomitant]
  6. LISINOPRIL [Concomitant]

REACTIONS (5)
  - Nausea [Unknown]
  - Vomiting [Unknown]
  - Dizziness [Unknown]
  - Fatigue [Unknown]
  - Rash [Unknown]
